FAERS Safety Report 6025962-0 (Version None)
Quarter: 2009Q1

REPORT INFORMATION
  Report Type: 
  Country: None (occurrence: None)
  Receive Date: 20090102
  Receipt Date: 20081229
  Transmission Date: 20090719
  Serious: Yes (Hospitalization)
  Sender: FDA-Public Use
  Company Number: JP-BRISTOL-MYERS SQUIBB COMPANY-14456206

PATIENT
  Age: 70 Year
  Sex: Female

DRUGS (5)
  1. TAXOL [Suspect]
     Indication: BREAST CANCER RECURRENT
     Dosage: INITIAL DOSE WAS GIVEN ON 11-JUN-2008. 12DEC08: DAY 15 OF THE 7TH COURSE.
     Route: 042
     Dates: start: 20081212, end: 20081212
  2. AVASTIN [Suspect]
     Indication: BREAST CANCER RECURRENT
     Dosage: INITIAL DOSE WAS GIVEN ON 11JUN08. 12DEC08: DAY 15 OF THE 7TH COURSE.
     Route: 042
     Dates: start: 20081212, end: 20081212
  3. MECOBALAMIN [Concomitant]
     Indication: NEUROPATHY PERIPHERAL
     Dates: start: 20080709
  4. GOSHAJINKIGAN [Concomitant]
     Indication: NEUROPATHY PERIPHERAL
     Dates: start: 20080912
  5. MAGNESIUM OXIDE [Concomitant]
     Indication: CONSTIPATION
     Dates: start: 20080716

REACTIONS (2)
  - JOINT DISLOCATION [None]
  - UPPER LIMB FRACTURE [None]
